FAERS Safety Report 14395137 (Version 3)
Quarter: 2018Q3

REPORT INFORMATION
  Report Type: Report from Study
  Country: JP (occurrence: JP)
  Receive Date: 20180116
  Receipt Date: 20180802
  Transmission Date: 20181010
  Serious: Yes (Hospitalization)
  Sender: FDA-Public Use
  Company Number: JP-PFIZER INC-2017536858

PATIENT
  Age: 85 Year
  Sex: Male
  Weight: 52 kg

DRUGS (21)
  1. XELJANZ [Suspect]
     Active Substance: TOFACITINIB CITRATE
     Indication: RHEUMATOID ARTHRITIS
     Dosage: 5 MG, 2X/DAY
     Route: 048
     Dates: start: 20170124, end: 20170825
  2. PREDNISOLONE. [Suspect]
     Active Substance: PREDNISOLONE
     Indication: RHEUMATOID ARTHRITIS
     Dosage: 2.5 MG, DAILY
     Route: 048
     Dates: start: 20130516, end: 20170827
  3. PREDNISOLONE. [Suspect]
     Active Substance: PREDNISOLONE
     Dosage: 40 MG, DAILY
     Route: 048
     Dates: start: 20171005, end: 20171019
  4. DEXALTIN [Concomitant]
     Active Substance: DEXAMETHASONE
  5. PREDNISOLONE. [Suspect]
     Active Substance: PREDNISOLONE
     Dosage: 40 MG, DAILY
     Route: 048
     Dates: start: 20170828, end: 20170904
  6. SELBEX [Concomitant]
     Active Substance: TEPRENONE
  7. METHYCOBAL [Concomitant]
     Active Substance: METHYLCOBALAMIN
  8. LYRICA [Concomitant]
     Active Substance: PREGABALIN
  9. MAGMITT [Concomitant]
     Active Substance: MAGNESIUM OXIDE
  10. PREDNISOLONE. [Suspect]
     Active Substance: PREDNISOLONE
     Dosage: 35 MG, DAILY
     Route: 048
     Dates: start: 20170905, end: 20170909
  11. PREDNISOLONE. [Suspect]
     Active Substance: PREDNISOLONE
     Dosage: 25 MG, DAILY
     Route: 048
     Dates: start: 20170914, end: 20171004
  12. CELECOX [Concomitant]
     Active Substance: CELECOXIB
     Dosage: UNK
     Route: 048
     Dates: start: 20100902
  13. DENOTAS [Concomitant]
     Active Substance: CALCIUM CARBONATE\CHOLECALCIFEROL\MAGNESIUM CARBONATE
  14. MOHRUS L [Concomitant]
     Active Substance: KETOPROFEN
  15. PREDNISOLONE. [Suspect]
     Active Substance: PREDNISOLONE
     Dosage: 30 MG, DAILY
     Route: 048
     Dates: start: 20170910, end: 20170913
  16. BAKTAR [Concomitant]
     Active Substance: SULFAMETHOXAZOLE\TRIMETHOPRIM
     Indication: ANTIBIOTIC PROPHYLAXIS
     Dosage: UNK
     Route: 048
     Dates: start: 20140821
  17. BENZALIN /00036201/ [Concomitant]
     Active Substance: NITRAZEPAM
  18. AMLODIPINE [Concomitant]
     Active Substance: AMLODIPINE BESYLATE
  19. RABEPRAZOLE [Concomitant]
     Active Substance: RABEPRAZOLE
  20. ANPLAG [Concomitant]
     Active Substance: SARPOGRELATE
  21. CALONAL [Concomitant]
     Active Substance: ACETAMINOPHEN

REACTIONS (3)
  - Large intestine perforation [Recovering/Resolving]
  - Interstitial lung disease [Recovering/Resolving]
  - Pneumonia bacterial [Recovering/Resolving]

NARRATIVE: CASE EVENT DATE: 20170825
